FAERS Safety Report 11118357 (Version 1)
Quarter: 2015Q2

REPORT INFORMATION
  Report Type: Spontaneous
  Country: CA (occurrence: CA)
  Receive Date: 20150518
  Receipt Date: 20150518
  Transmission Date: 20150821
  Serious: Yes (Disabling)
  Sender: FDA-Public Use
  Company Number: CA-TEVA-562412ACC

PATIENT
  Age: 26 Year
  Sex: Female
  Weight: 68 kg

DRUGS (2)
  1. SYNPHASIC 21 TABLETS [Concomitant]
     Dosage: UNKNOWN FORM STRENGTH
     Route: 065
  2. PANTOPRAZOLE [Suspect]
     Active Substance: PANTOPRAZOLE SODIUM
     Indication: DYSPEPSIA
     Dosage: 1 DOSAGE FORMS DAILY;
     Route: 048

REACTIONS (2)
  - Muscle tightness [Recovered/Resolved]
  - Back pain [Recovered/Resolved]
